FAERS Safety Report 8435921-6 (Version None)
Quarter: 2012Q2

REPORT INFORMATION
  Report Type: 
  Country: None (occurrence: None)
  Receive Date: 20120608
  Receipt Date: 20120608
  Transmission Date: 20120825
  Serious: No
  Sender: FDA-Public Use
  Company Number: None

PATIENT
  Sex: Male
  Weight: 101 kg

DRUGS (1)
  1. ALFA2 INTERFERON 2B (INTRON-A) [Suspect]
     Dosage: 950 MILLION IU

REACTIONS (1)
  - ARTHRALGIA [None]
